FAERS Safety Report 25412946 (Version 1)
Quarter: 2025Q2

REPORT INFORMATION
  Report Type: Spontaneous
  Country: HU (occurrence: HU)
  Receive Date: 20250609
  Receipt Date: 20250609
  Transmission Date: 20250717
  Serious: Yes (Life-Threatening)
  Sender: PFIZER
  Company Number: HU-ROCHE-10000295783

PATIENT

DRUGS (1)
  1. RITUXIMAB [Suspect]
     Active Substance: RITUXIMAB
     Indication: Encephalitis autoimmune

REACTIONS (6)
  - B-lymphocyte count decreased [Unknown]
  - Anaphylactic reaction [Unknown]
  - Anaphylactic shock [Unknown]
  - Mast cell activation syndrome [Unknown]
  - Sensory disturbance [Unknown]
  - Off label use [Unknown]
